FAERS Safety Report 4911037-8 (Version None)
Quarter: 2006Q1

REPORT INFORMATION
  Report Type: 
  Country: None (occurrence: None)
  Receive Date: 20060214
  Receipt Date: 20050823
  Transmission Date: 20060701
  Serious: Yes (Hospitalization)
  Sender: FDA-Public Use
  Company Number: US-MERCK-0508USA03920

PATIENT
  Age: 65 Year
  Sex: Male
  Weight: 91 kg

DRUGS (33)
  1. ALDARA [Concomitant]
     Route: 065
  2. PSORCON [Concomitant]
     Route: 065
  3. CLARITIN-D [Concomitant]
     Route: 065
  4. TRIMOX [Concomitant]
     Route: 065
  5. FLONASE [Concomitant]
     Route: 065
  6. SKELAXIN [Concomitant]
     Route: 065
  7. AMI-TEX LA (NEW FORMULA) [Concomitant]
     Route: 065
  8. LEVAQUIN [Concomitant]
     Route: 065
  9. METHYLPREDNISOLONE [Concomitant]
     Route: 065
  10. NEURONTIN [Concomitant]
     Route: 065
  11. ATENOLOL [Concomitant]
     Route: 065
  12. OXYCONTIN [Concomitant]
     Route: 065
  13. MORPHINE SULFATE [Concomitant]
     Route: 065
  14. MIRALAX [Concomitant]
     Route: 065
  15. ZANAFLEX [Concomitant]
     Route: 065
  16. CIPRO [Concomitant]
     Route: 065
  17. NITROQUICK [Concomitant]
     Route: 065
  18. BEXTRA [Concomitant]
     Route: 065
  19. BIAXIN [Concomitant]
     Route: 065
  20. ZYRTEC [Concomitant]
     Route: 065
  21. ADVIL [Concomitant]
     Route: 065
     Dates: start: 19990826
  22. VIOXX [Suspect]
     Indication: OSTEOARTHRITIS
     Route: 048
     Dates: start: 19991214, end: 20040912
  23. CELEBREX [Concomitant]
     Route: 065
  24. CEPHALEXIN [Concomitant]
     Route: 065
  25. NAPROXEN [Concomitant]
     Route: 065
  26. QUININE SULFATE [Concomitant]
     Route: 065
  27. FOLIC ACID [Concomitant]
     Route: 065
  28. TRIAMCINOLONE [Concomitant]
     Route: 065
  29. HYDROCODONE BITARTRATE [Concomitant]
     Route: 065
  30. ZITHROMAX [Concomitant]
     Route: 065
  31. TIZANIDINE HYDROCHLORIDE [Concomitant]
     Route: 065
  32. TEMAZEPAM [Concomitant]
     Route: 065
  33. WARFARIN [Concomitant]
     Route: 065
     Dates: start: 19991016

REACTIONS (4)
  - BLOOD TRIGLYCERIDES INCREASED [None]
  - CHEST PAIN [None]
  - HYPERTENSION [None]
  - MYOCARDIAL INFARCTION [None]
